FAERS Safety Report 24650589 (Version 1)
Quarter: 2024Q4

REPORT INFORMATION
  Report Type: Spontaneous
  Country: DE (occurrence: DE)
  Receive Date: 20241122
  Receipt Date: 20241122
  Transmission Date: 20250115
  Serious: Yes (Hospitalization, Other)
  Sender: MERCK
  Company Number: DE-009507513-2411DEU008205

PATIENT
  Age: 77 Year

DRUGS (1)
  1. PEMBROLIZUMAB [Suspect]
     Active Substance: PEMBROLIZUMAB
     Indication: Malignant melanoma
     Dosage: TOTAL OF 10 DOSES
     Dates: start: 20230228, end: 20230906

REACTIONS (19)
  - Malignant neoplasm progression [Unknown]
  - Type 1 diabetes mellitus [Unknown]
  - Renal impairment [Unknown]
  - Renal impairment [Unknown]
  - Thyroid disorder [Unknown]
  - Degenerative bone disease [Unknown]
  - Arthritis [Unknown]
  - Gastrointestinal disorder [Unknown]
  - Thymus disorder [Unknown]
  - Oedema mucosal [Unknown]
  - Lymphatic disorder [Unknown]
  - Bone lesion [Unknown]
  - Troponin T increased [Unknown]
  - C-reactive protein increased [Unknown]
  - Myoglobin blood increased [Unknown]
  - Blood bilirubin increased [Unknown]
  - Blood urea increased [Unknown]
  - Glycosylated haemoglobin increased [Unknown]
  - Pyrexia [Unknown]

NARRATIVE: CASE EVENT DATE: 20230228
